FAERS Safety Report 9048207 (Version 1)
Quarter: 2013Q1

REPORT INFORMATION
  Report Type: Spontaneous
  Country: US (occurrence: US)
  Receive Date: 20130204
  Receipt Date: 20130204
  Transmission Date: 20140127
  Serious: No
  Sender: FDA-Public Use
  Company Number: US-AMGEN-USASP2013002631

PATIENT
  Age: 51 Year
  Sex: Male

DRUGS (2)
  1. ENBREL [Suspect]
     Indication: RHEUMATOID ARTHRITIS
     Dosage: 50 MG, QWK
     Dates: start: 20080101
  2. METHOTREXATE [Concomitant]
     Dosage: 6 TABLETS (2.5 MG EACH) ONCE A WEEK
     Dates: start: 200801

REACTIONS (1)
  - Influenza [Recovered/Resolved]
